FAERS Safety Report 21070168 (Version 1)
Quarter: 2022Q3

REPORT INFORMATION
  Report Type: Spontaneous
  Country: US (occurrence: US)
  Receive Date: 20220712
  Receipt Date: 20220712
  Transmission Date: 20221026
  Serious: No
  Sender: FDA-Public Use
  Company Number: US-MYLANLABS-2022M1048143

PATIENT
  Age: 47 Year
  Sex: Female
  Weight: 107.05 kg

DRUGS (1)
  1. XULANE [Suspect]
     Active Substance: ETHINYL ESTRADIOL\NORELGESTROMIN
     Indication: Contraception
     Dosage: 150/35 MICROGRAM, QD (APPLY WEEKLY)
     Route: 062
     Dates: start: 20220619

REACTIONS (2)
  - Product adhesion issue [Unknown]
  - Lack of application site rotation [Unknown]

NARRATIVE: CASE EVENT DATE: 20220619
